FAERS Safety Report 24575311 (Version 2)
Quarter: 2024Q4

REPORT INFORMATION
  Report Type: Report from Study
  Country: FI (occurrence: FI)
  Receive Date: 20241104
  Receipt Date: 20241111
  Transmission Date: 20250115
  Serious: Yes (Other)
  Sender: MYLAN
  Company Number: FI-MYLANLABS-2024M1098536

PATIENT
  Age: 59 Year
  Sex: Male

DRUGS (1)
  1. CLOZAPINE [Suspect]
     Active Substance: CLOZAPINE
     Indication: Schizophrenia
     Dosage: UNK
     Route: 065

REACTIONS (4)
  - Neutropenia [Recovering/Resolving]
  - White blood cell count decreased [Not Recovered/Not Resolved]
  - Haemoglobin decreased [Unknown]
  - Off label use [Unknown]

NARRATIVE: CASE EVENT DATE: 20240101
